FAERS Safety Report 6972372-5 (Version None)
Quarter: 2010Q3

REPORT INFORMATION
  Report Type: 
  Country: None (occurrence: None)
  Receive Date: 20100909
  Receipt Date: 20100907
  Transmission Date: 20110219
  Serious: Yes (Life-Threatening)
  Sender: FDA-Public Use
  Company Number: IT-JNJFOC-20100701340

PATIENT
  Sex: Female

DRUGS (5)
  1. HALOPERIDOL [Suspect]
     Indication: PRODUCT USED FOR UNKNOWN INDICATION
     Route: 048
  2. TALOFEN [Suspect]
     Indication: AGITATION
     Route: 048
  3. ACETYLSALICYLIC ACID [Concomitant]
     Indication: CEREBROVASCULAR DISORDER
     Route: 048
  4. ENAPREN [Concomitant]
     Indication: HYPERTENSION
     Route: 048
  5. COSOPT [Concomitant]
     Indication: GLAUCOMA
     Route: 047

REACTIONS (1)
  - NEUTROPENIA [None]
